FAERS Safety Report 9686827 (Version 1)
Quarter: 2013Q4

REPORT INFORMATION
  Report Type: Spontaneous
  Country: BR (occurrence: BR)
  Receive Date: 20131113
  Receipt Date: 20131113
  Transmission Date: 20140711
  Serious: Yes (Hospitalization)
  Sender: FDA-Public Use
  Company Number: BR-ASTRAZENECA-2013SE81563

PATIENT
  Age: 681 Month
  Sex: Female
  Weight: 70 kg

DRUGS (6)
  1. CRESTOR [Suspect]
     Dosage: DAILY
     Route: 048
     Dates: start: 2011, end: 201306
  2. CRESTOR [Suspect]
     Route: 048
  3. SELOZOK [Suspect]
     Route: 048
     Dates: start: 201306
  4. PANTOPRAZOLE [Concomitant]
     Indication: GASTRITIS
     Dosage: DAILY
     Dates: start: 2011
  5. PANTOPRAZOLE [Concomitant]
     Indication: PROPHYLAXIS
     Dosage: DAILY
     Dates: start: 2011
  6. MICARDIS [Concomitant]
     Indication: HYPERTENSION
     Dosage: DAILY
     Dates: start: 2010

REACTIONS (2)
  - Myocardial infarction [Recovered/Resolved]
  - Off label use [Not Recovered/Not Resolved]
